FAERS Safety Report 7464119-3 (Version None)
Quarter: 2011Q2

REPORT INFORMATION
  Report Type: 
  Country: None (occurrence: None)
  Receive Date: 20110506
  Receipt Date: 20101130
  Transmission Date: 20111010
  Serious: No
  Sender: FDA-Public Use
  Company Number: US-AMGEN-TCS438947

PATIENT
  Age: 57 Year
  Sex: Female
  Weight: 54.422 kg

DRUGS (2)
  1. ENBREL [Suspect]
     Indication: PSORIASIS
     Dosage: 25 MG, QWK
     Route: 058
     Dates: start: 20060101
  2. BUPROPION [Concomitant]
     Dosage: UNK UNK, UNK
     Dates: start: 20090101

REACTIONS (5)
  - WRIST FRACTURE [None]
  - HERPES ZOSTER [None]
  - RASH [None]
  - BACK PAIN [None]
  - FALL [None]
